FAERS Safety Report 5244976-1 (Version None)
Quarter: 2007Q1

REPORT INFORMATION
  Report Type: 
  Country: None (occurrence: None)
  Receive Date: 20070221
  Receipt Date: 20070221
  Transmission Date: 20070707
  Serious: Yes (Death)
  Sender: FDA-Public Use
  Company Number: None

PATIENT
  Age: 36 Year
  Sex: Female
  Weight: 108.8633 kg

DRUGS (11)
  1. IMMUNE GLOBULIN INTRAVENOUS (HUMAN) [Suspect]
     Indication: IDIOPATHIC THROMBOCYTOPENIC PURPURA
     Dosage: 0.4 GM/KG  DAILY IV
     Route: 042
     Dates: start: 20061020, end: 20061021
  2. IMMUNE GLOBULIN INTRAVENOUS (HUMAN) [Suspect]
     Indication: IDIOPATHIC THROMBOCYTOPENIC PURPURA
     Dosage: 0.5 GM/KG DAILY IV
     Route: 042
     Dates: start: 20061022, end: 20061022
  3. FUROSEMIDE [Concomitant]
  4. SOLU-MEDROL [Concomitant]
  5. VICODIN [Concomitant]
  6. CLONIDINE [Concomitant]
  7. FLOVENT [Concomitant]
  8. REGULAR INSULIN [Concomitant]
  9. PANTOPRAZOLE SODIUM [Concomitant]
  10. PREDNISONE [Concomitant]
  11. MAALOX FAST BLOCKER [Concomitant]

REACTIONS (12)
  - ACUTE PULMONARY OEDEMA [None]
  - BLOOD PRESSURE INCREASED [None]
  - BODY TEMPERATURE DECREASED [None]
  - CARDIO-RESPIRATORY ARREST [None]
  - COAGULOPATHY [None]
  - CONFUSIONAL STATE [None]
  - DIZZINESS [None]
  - FIBRIN D DIMER INCREASED [None]
  - HYPERGLYCAEMIA [None]
  - HYPERHIDROSIS [None]
  - RENAL FAILURE ACUTE [None]
  - THROMBOSIS [None]
